FAERS Safety Report 13101996 (Version 7)
Quarter: 2017Q3

REPORT INFORMATION
  Report Type: Report from Study
  Country: GB (occurrence: GB)
  Receive Date: 20170110
  Receipt Date: 20170914
  Transmission Date: 20171127
  Serious: Yes (Hospitalization, Other)
  Sender: FDA-Public Use
  Company Number: GB-BRISTOL-MYERS SQUIBB COMPANY-BMS-2017-000851

PATIENT
  Sex: Female

DRUGS (1)
  1. ABATACEPT [Suspect]
     Active Substance: ABATACEPT
     Indication: RHEUMATOID ARTHRITIS
     Dosage: 125 MG, QWK
     Route: 058
     Dates: start: 20161101

REACTIONS (10)
  - Lower respiratory tract infection [Not Recovered/Not Resolved]
  - Product storage error [Unknown]
  - Malaise [Unknown]
  - Hypertension [Unknown]
  - Oxygen saturation decreased [Unknown]
  - Herpes zoster [Unknown]
  - Urinary tract infection [Unknown]
  - Cystitis [Unknown]
  - Vertigo [Unknown]
  - Dizziness [Unknown]
